FAERS Safety Report 23566845 (Version 1)
Quarter: 2024Q1

REPORT INFORMATION
  Report Type: Spontaneous
  Country: US (occurrence: US)
  Receive Date: 20240226
  Receipt Date: 20240226
  Transmission Date: 20240410
  Serious: Yes (Other)
  Sender: FDA-Public Use
  Company Number: US-AMNEAL PHARMACEUTICALS-2023-AMRX-02148

PATIENT
  Sex: Male

DRUGS (6)
  1. RYTARY [Suspect]
     Active Substance: CARBIDOPA\LEVODOPA
     Indication: Parkinson^s disease
     Dosage: 2 (36.25/145 MG) CAPSULES, 5 /DAY
     Route: 048
  2. RYTARY [Suspect]
     Active Substance: CARBIDOPA\LEVODOPA
     Dosage: 1 (61.25-245 MG) CAPSULES, 5 /DAY
     Route: 048
     Dates: start: 20220517
  3. RYTARY [Suspect]
     Active Substance: CARBIDOPA\LEVODOPA
     Dosage: 1 (23.75-95 MG) CAPSULES, 5 /DAY
     Route: 048
  4. RYTARY [Suspect]
     Active Substance: CARBIDOPA\LEVODOPA
     Dosage: 1 (61.25/245 MG) CAPSULES, 5 /DAY
     Route: 048
     Dates: start: 20220725
  5. RYTARY [Suspect]
     Active Substance: CARBIDOPA\LEVODOPA
     Dosage: 1 (48.75/195 MG) CAPSULES, 5 /DAY
     Route: 048
     Dates: start: 20221108
  6. RYTARY [Suspect]
     Active Substance: CARBIDOPA\LEVODOPA
     Dosage: 1 (48.75/195 MG) CAPSULES, 6 /DAY
     Route: 048
     Dates: start: 20230210

REACTIONS (3)
  - Hallucination [Unknown]
  - Cystitis [Unknown]
  - Gait disturbance [Unknown]
